FAERS Safety Report 19049593 (Version 1)
Quarter: 2021Q1

REPORT INFORMATION
  Report Type: Spontaneous
  Country: US (occurrence: US)
  Receive Date: 20210323
  Receipt Date: 20210323
  Transmission Date: 20210420
  Serious: No
  Sender: FDA-Public Use
  Company Number: US-GALDERMA-US2021001130

PATIENT
  Sex: Female

DRUGS (2)
  1. DIFFERIN GEL [Suspect]
     Active Substance: ADAPALENE
     Indication: THERAPEUTIC SKIN CARE TOPICAL
  2. DIFFERIN GEL [Suspect]
     Active Substance: ADAPALENE
     Indication: SKIN MASS
     Dosage: 0.1%
     Route: 061
     Dates: start: 20201223

REACTIONS (3)
  - Product use in unapproved indication [Recovered/Resolved]
  - Dry skin [Not Recovered/Not Resolved]
  - Skin exfoliation [Not Recovered/Not Resolved]

NARRATIVE: CASE EVENT DATE: 20201223
